FAERS Safety Report 4332770-5 (Version None)
Quarter: 2004Q1

REPORT INFORMATION
  Report Type: 
  Country: None (occurrence: None)
  Receive Date: 20040330
  Receipt Date: 20040315
  Transmission Date: 20041129
  Serious: Yes (Hospitalization)
  Sender: FDA-Public Use
  Company Number: 2003AP03165

PATIENT
  Age: 60 Year
  Sex: Female

DRUGS (14)
  1. IRESSA [Suspect]
     Indication: LUNG SQUAMOUS CELL CARCINOMA STAGE UNSPECIFIED
     Dosage: 250 MG DAILY PO
     Route: 048
     Dates: start: 20030825, end: 20030901
  2. IRESSA [Suspect]
     Indication: LUNG SQUAMOUS CELL CARCINOMA STAGE UNSPECIFIED
     Dosage: 250 MG DAILY PO
     Route: 048
     Dates: start: 20030916, end: 20031021
  3. IRESSA [Suspect]
     Indication: LUNG SQUAMOUS CELL CARCINOMA STAGE UNSPECIFIED
     Dosage: 250 MG DAILY PO
     Route: 048
     Dates: start: 20031118
  4. LEVOFLOXACIN [Suspect]
     Indication: CYSTITIS
     Dosage: 250 MG DAILY PO
     Route: 048
     Dates: start: 20030824, end: 20030831
  5. GASTER [Concomitant]
  6. PANVITAN [Concomitant]
  7. MYSLEE [Concomitant]
  8. MS CONTIN [Concomitant]
  9. MAGNESIUM OXIDE [Concomitant]
  10. SOLETON [Concomitant]
  11. MUCOSTA [Concomitant]
  12. PICIBANIL [Concomitant]
  13. CEFPIROME [Concomitant]
  14. PAZUFLOXACIN [Concomitant]

REACTIONS (3)
  - DERMATITIS ACNEIFORM [None]
  - DRUG ERUPTION [None]
  - EXCESSIVE GRANULATION TISSUE [None]
